FAERS Safety Report 5717035-9 (Version None)
Quarter: 2008Q2

REPORT INFORMATION
  Report Type: 
  Country: None (occurrence: None)
  Receive Date: 20080424
  Receipt Date: 20080415
  Transmission Date: 20081010
  Serious: Yes (Other)
  Sender: FDA-Public Use
  Company Number: US-PFIZER INC-2007079704

PATIENT
  Sex: Male
  Weight: 76.7 kg

DRUGS (1)
  1. CARDURA [Suspect]
     Indication: PROSTATISM
     Route: 048

REACTIONS (4)
  - BUNDLE BRANCH BLOCK RIGHT [None]
  - CARDIAC ARREST [None]
  - CONDUCTION DISORDER [None]
  - LOSS OF CONSCIOUSNESS [None]
